FAERS Safety Report 12874396 (Version 1)
Quarter: 2016Q4

REPORT INFORMATION
  Report Type: Spontaneous
  Country: US (occurrence: US)
  Receive Date: 20161021
  Receipt Date: 20161021
  Transmission Date: 20170207
  Serious: Yes (Hospitalization)
  Sender: FDA-Public Use
  Company Number: US-ASTRAZENECA-2007BM11681

PATIENT
  Age: 830 Month
  Sex: Female
  Weight: 95.3 kg

DRUGS (8)
  1. BYETTA [Suspect]
     Active Substance: EXENATIDE
     Indication: TYPE 2 DIABETES MELLITUS
     Route: 058
     Dates: start: 200609, end: 200610
  2. BYETTA [Suspect]
     Active Substance: EXENATIDE
     Indication: TYPE 2 DIABETES MELLITUS
     Route: 058
     Dates: start: 200610
  3. GLIMEPIRIDE. [Concomitant]
     Active Substance: GLIMEPIRIDE
     Indication: TYPE 2 DIABETES MELLITUS
     Route: 048
  4. NORVASC [Concomitant]
     Active Substance: AMLODIPINE BESYLATE
     Indication: HYPERTENSION
     Route: 048
  5. METFORMIN [Concomitant]
     Active Substance: METFORMIN HYDROCHLORIDE
     Indication: TYPE 2 DIABETES MELLITUS
     Route: 048
  6. VEGETARIAN CALCIUM [Concomitant]
     Indication: SUPPLEMENTATION THERAPY
     Dosage: TWO TIMES A DAY
     Route: 048
  7. SCHIFF MOVE FREE [Concomitant]
     Active Substance: CHONDROITIN SULFATE A\GLUCOSAMINE
     Indication: ARTHROPATHY
     Dosage: TWO TIMES A DAY
     Route: 048
  8. NOVOLOG [Concomitant]
     Active Substance: INSULIN ASPART
     Dosage: UNK
     Dates: end: 200609

REACTIONS (14)
  - Weight decreased [Not Recovered/Not Resolved]
  - Macular degeneration [Unknown]
  - Upper limb fracture [Unknown]
  - Syncope [Unknown]
  - Blood glucose increased [Not Recovered/Not Resolved]
  - Device issue [Unknown]
  - Nausea [Not Recovered/Not Resolved]
  - Vomiting [Recovering/Resolving]
  - Drug ineffective [Not Recovered/Not Resolved]
  - Drug dose omission [Unknown]
  - Fall [Unknown]
  - Limb crushing injury [Unknown]
  - Body height decreased [Unknown]
  - Cardiac disorder [Unknown]

NARRATIVE: CASE EVENT DATE: 200609
